FAERS Safety Report 13915815 (Version 2)
Quarter: 2017Q3

REPORT INFORMATION
  Report Type: Report from Study
  Country: AR (occurrence: AR)
  Receive Date: 20170829
  Receipt Date: 20170927
  Transmission Date: 20171127
  Serious: Yes (Death)
  Sender: FDA-Public Use
  Company Number: PHHY2017AR126664

PATIENT
  Age: 61 Year
  Sex: Male

DRUGS (1)
  1. ENTRESTO [Suspect]
     Active Substance: SACUBITRIL\VALSARTAN
     Indication: CARDIAC FAILURE CHRONIC
     Dosage: 50 MG, UNK
     Route: 065
     Dates: start: 20160726

REACTIONS (3)
  - Infarction [Fatal]
  - Cardiac failure [Fatal]
  - Malaise [Unknown]

NARRATIVE: CASE EVENT DATE: 20161111
